FAERS Safety Report 8621326-1 (Version None)
Quarter: 2012Q3

REPORT INFORMATION
  Report Type: 
  Country: None (occurrence: None)
  Receive Date: 20120824
  Receipt Date: 20120815
  Transmission Date: 20120928
  Serious: Yes (Hospitalization, Other)
  Sender: FDA-Public Use
  Company Number: GB-ROCHE-1104701

PATIENT
  Sex: Female

DRUGS (5)
  1. SYMBICORT [Concomitant]
  2. THEOPHYLLINE [Concomitant]
  3. MONTELUKAST [Concomitant]
  4. FLUOXETINE HCL [Concomitant]
  5. XOLAIR [Suspect]
     Indication: ASTHMA
     Route: 058
     Dates: start: 20100701, end: 20120501

REACTIONS (3)
  - ALOPECIA [None]
  - HEADACHE [None]
  - NASAL TURBINATE HYPERTROPHY [None]
